FAERS Safety Report 13229873 (Version 1)
Quarter: 2017Q1

REPORT INFORMATION
  Report Type: Spontaneous
  Country: US (occurrence: US)
  Receive Date: 20170213
  Receipt Date: 20170213
  Transmission Date: 20170428
  Serious: Yes (Hospitalization)
  Sender: FDA-Public Use
  Company Number: None

PATIENT
  Age: 82 Year
  Sex: Male

DRUGS (8)
  1. LENALIDOMIDE [Concomitant]
     Active Substance: LENALIDOMIDE
  2. REVLIMID [Suspect]
     Active Substance: LENALIDOMIDE
     Indication: PLASMA CELL MYELOMA
     Dosage: 10MG DAILY X 21D/28D ORAL
     Route: 048
     Dates: start: 20160829, end: 20161215
  3. BACTRIIM [Concomitant]
  4. DRONABINOL. [Concomitant]
     Active Substance: DRONABINOL
  5. VENLAFAXINE [Concomitant]
     Active Substance: VENLAFAXINE HYDROCHLORIDE
  6. MIDODRIN [Concomitant]
  7. ZOLEDRONIC ACID [Concomitant]
     Active Substance: ZOLEDRONIC ACID
  8. ASPIRIN. [Concomitant]
     Active Substance: ASPIRIN

REACTIONS (5)
  - Pneumonia [None]
  - Acute kidney injury [None]
  - Weight decreased [None]
  - Sepsis [None]
  - Platelet count decreased [None]

NARRATIVE: CASE EVENT DATE: 20161215
